FAERS Safety Report 20908945 (Version 1)
Quarter: 2022Q2

REPORT INFORMATION
  Report Type: Spontaneous
  Country: US (occurrence: US)
  Receive Date: 20220603
  Receipt Date: 20220603
  Transmission Date: 20220720
  Serious: Yes (Other)
  Sender: FDA-Public Use
  Company Number: US-SA-SAC20220531000547

PATIENT
  Age: 59 Year
  Sex: Female

DRUGS (2)
  1. ZANTAC [Suspect]
     Active Substance: RANITIDINE HYDROCHLORIDE
     Indication: Dyspepsia
     Dosage: 75 MG; FREQUENCY: OCCASIONAL
     Dates: start: 200604
  2. ZANTAC [Suspect]
     Active Substance: RANITIDINE HYDROCHLORIDE
     Indication: Abdominal discomfort
     Dosage: 150 MG;FREQUENCY: OCCASIONAL
     Dates: end: 201906

REACTIONS (2)
  - Pancreatic carcinoma stage III [Not Recovered/Not Resolved]
  - Hepatic cancer stage III [Not Recovered/Not Resolved]

NARRATIVE: CASE EVENT DATE: 20190801
